FAERS Safety Report 6825370-6 (Version None)
Quarter: 2010Q3

REPORT INFORMATION
  Report Type: 
  Country: None (occurrence: None)
  Receive Date: 20100708
  Receipt Date: 20061231
  Transmission Date: 20110219
  Serious: No
  Sender: FDA-Public Use
  Company Number: US-PFIZER INC-2007002008

PATIENT
  Sex: Female
  Weight: 74.84 kg

DRUGS (1)
  1. CHANTIX [Suspect]
     Indication: SMOKING CESSATION THERAPY
     Dates: start: 20061212

REACTIONS (5)
  - ABDOMINAL PAIN [None]
  - BACK PAIN [None]
  - GAIT DISTURBANCE [None]
  - MUSCLE STRAIN [None]
  - PREGNANCY TEST POSITIVE [None]
